FAERS Safety Report 7877622-9 (Version None)
Quarter: 2011Q4

REPORT INFORMATION
  Report Type: 
  Country: None (occurrence: None)
  Receive Date: 20111031
  Receipt Date: 20111020
  Transmission Date: 20120403
  Serious: Yes (Hospitalization, Other)
  Sender: FDA-Public Use
  Company Number: US-ASTRAZENECA-2011SE63558

PATIENT
  Age: 62 Year
  Sex: Male
  Weight: 77.6 kg

DRUGS (8)
  1. CARVEDILOL [Concomitant]
     Indication: ARRHYTHMIA
  2. TRAZODONE HYDROCHLORIDE [Concomitant]
     Indication: SLEEP DISORDER
  3. INTEGRA PLUS [Concomitant]
     Indication: ANAEMIA
     Dosage: ONCE
  4. CYCLOPHOSPHAMIDE [Concomitant]
     Indication: PAIN
  5. SEROQUEL [Suspect]
     Indication: DEPRESSION
     Route: 048
     Dates: start: 20110201
  6. COUMADIN [Concomitant]
  7. SEROQUEL [Suspect]
     Indication: POST-TRAUMATIC STRESS DISORDER
     Route: 048
     Dates: start: 20110201
  8. RAPAFLO [Concomitant]
     Indication: DYSURIA

REACTIONS (3)
  - INTERVERTEBRAL DISC PROTRUSION [None]
  - OFF LABEL USE [None]
  - POST PROCEDURAL HAEMORRHAGE [None]
